FAERS Safety Report 9122957 (Version 1)
Quarter: 2013Q1

REPORT INFORMATION
  Report Type: Spontaneous
  Country: IT (occurrence: IT)
  Receive Date: 20130115
  Receipt Date: 20130115
  Transmission Date: 20140127
  Serious: Yes (Hospitalization)
  Sender: FDA-Public Use
  Company Number: IT-ROCHE-1178998

PATIENT
  Age: 50 Year
  Sex: Female

DRUGS (7)
  1. RIVOTRIL [Suspect]
     Indication: QUADRIPARESIS
     Route: 048
     Dates: start: 20120901, end: 20121012
  2. METHADONE [Suspect]
     Indication: DRUG WITHDRAWAL SYNDROME
     Dosage: DRUG REPORTED AS METADONE CLORIDRATO AFOM
     Route: 048
     Dates: start: 20120901, end: 20121012
  3. DUROGESIC [Suspect]
     Indication: QUADRIPARESIS
     Route: 062
     Dates: start: 20120901, end: 20121012
  4. SERTRALINA [Suspect]
     Indication: DEPRESSION
     Dosage: DRUG REPORTED AS SERTRALINA ALMUS
     Route: 048
     Dates: start: 20120901, end: 20121012
  5. BACLOFENE [Suspect]
     Indication: QUADRIPARESIS
     Dosage: DRUG REPORTED AS BACLOFENE SUN, FORM OF ADMINSTRATION 10MG/ML, INFUSIONAL SOLUTION
     Route: 037
     Dates: start: 20120901, end: 20121012
  6. DIAZEPAM [Suspect]
     Indication: PRODUCT USED FOR UNKNOWN INDICATION
     Dosage: DRUG REPORTED AS DIAZEPAM ACTAVIS
     Route: 048
     Dates: start: 20120901, end: 20121012
  7. GABAPENTINA [Suspect]
     Indication: NEURALGIA
     Dosage: DRUG REPORTED AS GABAPENTINA ABC
     Route: 048
     Dates: start: 20120901, end: 20121012

REACTIONS (2)
  - Psychomotor retardation [Unknown]
  - Sopor [Unknown]
